FAERS Safety Report 10221547 (Version 4)
Quarter: 2015Q1

REPORT INFORMATION
  Report Type: Spontaneous
  Country: US (occurrence: US)
  Receive Date: 20140606
  Receipt Date: 20150323
  Transmission Date: 20150720
  Serious: Yes (Hospitalization, Other)
  Sender: FDA-Public Use
  Company Number: US-JNJFOC-20140519192

PATIENT
  Age: 47 Year
  Sex: Female

DRUGS (10)
  1. ENTOCORT [Concomitant]
     Active Substance: BUDESONIDE
     Indication: AUTOIMMUNE HEPATITIS
     Route: 048
     Dates: end: 201404
  2. CEFEPIME [Concomitant]
     Active Substance: CEFEPIME\CEFEPIME HYDROCHLORIDE
     Indication: PRODUCT USED FOR UNKNOWN INDICATION
     Route: 042
     Dates: start: 20140527
  3. SOVALDI [Suspect]
     Active Substance: SOFOSBUVIR
     Indication: HEPATITIS C
     Route: 048
     Dates: start: 201402, end: 201404
  4. RIBAVIRIN. [Suspect]
     Active Substance: RIBAVIRIN
     Indication: HEPATITIS C
     Route: 065
     Dates: start: 201402
  5. ZOFRAN [Concomitant]
     Active Substance: ONDANSETRON HYDROCHLORIDE
     Indication: PRODUCT USED FOR UNKNOWN INDICATION
     Route: 065
  6. PURINETHOL [Suspect]
     Active Substance: MERCAPTOPURINE
     Indication: AUTOIMMUNE HEPATITIS
     Route: 048
     Dates: end: 201404
  7. PURINETHOL [Suspect]
     Active Substance: MERCAPTOPURINE
     Indication: AUTOIMMUNE HEPATITIS
     Route: 048
     Dates: start: 201404
  8. OLYSIO [Suspect]
     Active Substance: SIMEPREVIR
     Indication: HEPATITIS C
     Route: 048
     Dates: start: 201402, end: 201404
  9. ENTOCORT [Concomitant]
     Active Substance: BUDESONIDE
     Indication: AUTOIMMUNE HEPATITIS
     Route: 048
     Dates: start: 201404, end: 201405
  10. AUGMENTIN [Concomitant]
     Active Substance: AMOXICILLIN\CLAVULANATE POTASSIUM
     Indication: DYSURIA
     Route: 048

REACTIONS (18)
  - Drug-induced liver injury [Recovered/Resolved]
  - Dysuria [Recovering/Resolving]
  - Cough [Recovering/Resolving]
  - Ocular icterus [Recovered/Resolved]
  - Subacute hepatic failure [Recovered/Resolved]
  - Urinary tract infection [Recovered/Resolved]
  - Urosepsis [Unknown]
  - Decreased appetite [Recovering/Resolving]
  - Pyrexia [Recovered/Resolved]
  - Peripheral swelling [Recovering/Resolving]
  - Jaundice [Recovered/Resolved]
  - Fatigue [Recovering/Resolving]
  - Off label use [Recovered/Resolved]
  - Autoimmune hepatitis [Recovered/Resolved]
  - Tachycardia [Recovered/Resolved]
  - Pruritus generalised [Recovering/Resolving]
  - Diarrhoea [Recovering/Resolving]
  - Nausea [Recovering/Resolving]

NARRATIVE: CASE EVENT DATE: 201402
